FAERS Safety Report 5797249-2 (Version None)
Quarter: 2008Q3

REPORT INFORMATION
  Report Type: 
  Country: None (occurrence: None)
  Receive Date: 20080701
  Receipt Date: 20080627
  Transmission Date: 20090109
  Serious: Yes (Hospitalization)
  Sender: FDA-Public Use
  Company Number: FR-MERCK-0806FRA00078

PATIENT
  Age: 70 Year
  Sex: Female

DRUGS (8)
  1. COZAAR [Suspect]
     Indication: HYPERTENSION
     Route: 048
  2. ATENOLOL [Suspect]
     Indication: HYPERTENSION
     Route: 048
  3. ATENOLOL [Suspect]
     Indication: ANGINA PECTORIS
     Route: 048
  4. NITROGLYCERIN [Suspect]
     Indication: ANGINA PECTORIS
     Route: 048
     Dates: end: 20080522
  5. GLIPIZIDE [Concomitant]
     Indication: TYPE 2 DIABETES MELLITUS
     Route: 048
  6. LOVASTATIN [Concomitant]
     Indication: HYPERCHOLESTEROLAEMIA
     Route: 048
  7. WARFARIN [Concomitant]
     Indication: ANGINA PECTORIS
     Route: 048
  8. ESTRADIOL [Concomitant]
     Route: 065

REACTIONS (3)
  - BRADYCARDIA [None]
  - DRUG INTERACTION [None]
  - SYNCOPE [None]
